FAERS Safety Report 5860683-6 (Version None)
Quarter: 2008Q3

REPORT INFORMATION
  Report Type: 
  Country: None (occurrence: None)
  Receive Date: 20080827
  Receipt Date: 20071022
  Transmission Date: 20090109
  Serious: No
  Sender: FDA-Public Use
  Company Number: US-ABBOTT-07P-163-0421492-00

PATIENT
  Sex: Female
  Weight: 61.29 kg

DRUGS (3)
  1. NIASPAN [Suspect]
     Indication: BLOOD CHOLESTEROL INCREASED
     Dosage: AT NIGHT
     Route: 048
     Dates: start: 20070901, end: 20071013
  2. NIASPAN [Suspect]
     Dosage: AT NIGHT
     Route: 048
     Dates: start: 20071014, end: 20071015
  3. ACETYLSALICYLIC ACID SRT [Concomitant]
     Indication: DRUG USE FOR UNKNOWN INDICATION

REACTIONS (3)
  - FEELING HOT [None]
  - FLUSHING [None]
  - PRURITUS [None]
